FAERS Safety Report 18410299 (Version 1)
Quarter: 2020Q4

REPORT INFORMATION
  Report Type: Spontaneous
  Country: US (occurrence: US)
  Receive Date: 20201021
  Receipt Date: 20201021
  Transmission Date: 20210114
  Serious: Yes (Disabling)
  Sender: FDA-Public Use
  Company Number: None

PATIENT
  Age: 66 Year
  Sex: Female
  Weight: 81.2 kg

DRUGS (1)
  1. FARXIGA [Suspect]
     Active Substance: DAPAGLIFLOZIN PROPANEDIOL
     Indication: FOURNIER^S GANGRENE
     Route: 048
     Dates: start: 20191211, end: 20200822

REACTIONS (1)
  - Ileostomy [None]

NARRATIVE: CASE EVENT DATE: 20200826
